FAERS Safety Report 8876691 (Version 1)
Quarter: 2012Q4

REPORT INFORMATION
  Report Type: 
  Country: US (occurrence: US)
  Receive Date: 20121023
  Receipt Date: 20121023
  Transmission Date: 20130627
  Serious: Yes (Hospitalization)
  Sender: FDA-Public Use
  Company Number: US-AMGEN-USASP2012008311

PATIENT
  Age: 65 Year
  Sex: Female

DRUGS (1)
  1. ENBREL [Suspect]
     Indication: PSORIASIS
     Dosage: 50 mg, qwk
     Dates: start: 20060501, end: 201201

REACTIONS (7)
  - Urinary tract infection [Recovered/Resolved]
  - Colitis [Recovered/Resolved]
  - Lethargy [Not Recovered/Not Resolved]
  - Feeling abnormal [Recovered/Resolved]
  - Fatigue [Not Recovered/Not Resolved]
  - Diarrhoea [Recovered/Resolved]
  - Drug ineffective [Not Recovered/Not Resolved]
